FAERS Safety Report 24809348 (Version 1)
Quarter: 2025Q1

REPORT INFORMATION
  Report Type: Spontaneous
  Country: GB (occurrence: GB)
  Receive Date: 20250106
  Receipt Date: 20250106
  Transmission Date: 20250409
  Serious: Yes (Disabling, Other)
  Sender: ASTELLAS
  Company Number: None

PATIENT
  Age: 23 Year
  Sex: Female
  Weight: 75 kg

DRUGS (3)
  1. SOLIFENACIN [Suspect]
     Active Substance: SOLIFENACIN
     Indication: Incontinence
     Route: 065
     Dates: start: 20241220
  2. CITALOPRAM [Concomitant]
     Active Substance: CITALOPRAM
     Indication: Depression
     Route: 050
  3. LAMOTRIGINE [Concomitant]
     Active Substance: LAMOTRIGINE
     Indication: Mood swings
     Route: 050

REACTIONS (1)
  - Anxiety [Not Recovered/Not Resolved]
